FAERS Safety Report 9524161 (Version 1)
Quarter: 2013Q1

REPORT INFORMATION
  Report Type: Spontaneous
  Country: US (occurrence: None)
  Receive Date: 20130305
  Receipt Date: 20130305
  Transmission Date: 20140127
  Serious: Yes (Hospitalization)
  Sender: FDA-Public Use
  Company Number: 163-21880-12022497

PATIENT
  Sex: Female

DRUGS (3)
  1. REVLIMID [Suspect]
     Indication: PLASMA CELL MYELOMA
     Dosage: DAILY FOR 21 DAYS EVERY 28 DAYS
     Route: 048
     Dates: start: 20111108
  2. NORVASC (AMLODIPINE BESILATE) (UNKNOWN) [Concomitant]
  3. CARDIZEM (DILTIAZEM HYDROCHLORIDE) (UNKNOWN) [Concomitant]

REACTIONS (3)
  - Tachycardia [None]
  - Myocardial infarction [None]
  - Pneumonia [None]
